FAERS Safety Report 6995038-4 (Version None)
Quarter: 2010Q3

REPORT INFORMATION
  Report Type: 
  Country: None (occurrence: None)
  Receive Date: 20100917
  Receipt Date: 20090805
  Transmission Date: 20110219
  Serious: Yes (Other)
  Sender: FDA-Public Use
  Company Number: HQWYE938405AUG04

PATIENT
  Sex: Female

DRUGS (3)
  1. PREMPRO [Suspect]
  2. PROVERA [Suspect]
  3. PREMARIN [Suspect]

REACTIONS (1)
  - BREAST CANCER [None]
